FAERS Safety Report 6392299-X (Version None)
Quarter: 2009Q4

REPORT INFORMATION
  Report Type: 
  Country: None (occurrence: None)
  Receive Date: 20091007
  Receipt Date: 20091001
  Transmission Date: 20100525
  Serious: Yes (Life-Threatening, Disabling, Other)
  Sender: FDA-Public Use
  Company Number: JP-ELI_LILLY_AND_COMPANY-JP200909003099

PATIENT
  Sex: Male
  Weight: 40 kg

DRUGS (14)
  1. ALIMTA [Suspect]
     Indication: LUNG ADENOCARCINOMA STAGE IV
     Dosage: 500 MG/M2, UNK
     Route: 042
     Dates: start: 20090819, end: 20090819
  2. CARBOPLATIN [Concomitant]
     Indication: LUNG ADENOCARCINOMA STAGE IV
     Dosage: 5AUC
     Route: 042
     Dates: start: 20090819, end: 20090819
  3. PANVITAN [Concomitant]
     Dosage: 1 G, DAILY (1/D)
     Route: 048
     Dates: start: 20090807
  4. HYDROXOCOBALAMIN [Concomitant]
     Dosage: 1 MG, OTHER
     Route: 030
     Dates: start: 20090807
  5. LUVOX [Concomitant]
     Indication: DEPRESSION
     Dosage: 100 MG, DAILY (1/D)
     Route: 048
     Dates: start: 20090724
  6. ACTOS [Concomitant]
     Indication: DIABETES MELLITUS
     Dosage: 15 MG, DAILY (1/D)
     Route: 048
     Dates: start: 20090724
  7. BLOPRESS [Concomitant]
     Indication: HYPERTENSION
     Dosage: 8 MG, DAILY (1/D)
     Route: 048
     Dates: start: 20090724
  8. LENDORMIN [Concomitant]
     Indication: INSOMNIA
     Dosage: 0.25 MG, DAILY (1/D)
     Route: 048
     Dates: start: 20090724
  9. DEPAS [Concomitant]
     Indication: ANXIETY DISORDER
     Dosage: 0.5 MG, DAILY (1/D)
     Route: 048
     Dates: start: 20090724
  10. OMEPRAL [Concomitant]
     Indication: REFLUX OESOPHAGITIS
     Dosage: 20 MG, DAILY (1/D)
     Route: 048
     Dates: start: 20090724
  11. KLARICID [Concomitant]
     Indication: BRONCHITIS CHRONIC
     Dosage: 400 MG, DAILY (1/D)
     Route: 048
     Dates: start: 20090724
  12. SEREVENT [Concomitant]
     Indication: REFLUX OESOPHAGITIS
     Route: 055
     Dates: start: 20090724
  13. SPIRIVA [Concomitant]
     Indication: REFLUX OESOPHAGITIS
     Route: 055
     Dates: start: 20090724
  14. DUROTEP [Concomitant]
     Dosage: 2.1 MG, DAILY (1/D)
     Route: 062
     Dates: start: 20090819

REACTIONS (7)
  - DECREASED APPETITE [None]
  - FEBRILE NEUTROPENIA [None]
  - INTERSTITIAL LUNG DISEASE [None]
  - MALAISE [None]
  - NAUSEA [None]
  - PLATELET COUNT DECREASED [None]
  - VOMITING [None]
